FAERS Safety Report 5293825-4 (Version None)
Quarter: 2007Q2

REPORT INFORMATION
  Report Type: 
  Country: None (occurrence: None)
  Receive Date: 20070411
  Receipt Date: 20070330
  Transmission Date: 20071010
  Serious: Yes (Death)
  Sender: FDA-Public Use
  Company Number: DE-PFIZER INC-2006118341

PATIENT
  Sex: Male

DRUGS (8)
  1. SU-011,248 [Suspect]
     Indication: GASTROINTESTINAL STROMAL TUMOUR
     Route: 048
     Dates: start: 20051213, end: 20060920
  2. KALINOR [Concomitant]
     Indication: HYPOKALAEMIA
     Dates: start: 20051205, end: 20051205
  3. UNACID [Concomitant]
     Indication: BRONCHITIS
     Dates: start: 20051121, end: 20051208
  4. STILNOX [Concomitant]
     Indication: SLEEP DISORDER
     Dates: start: 20051207, end: 20051212
  5. STILNOX [Concomitant]
     Dates: start: 20060307, end: 20060308
  6. PANTOZOL [Concomitant]
     Indication: PROPHYLAXIS
     Dates: start: 20051121
  7. RAMIPRIL [Concomitant]
     Indication: HYPERTENSION
     Dates: start: 20060406
  8. LOCOL [Concomitant]
     Indication: HYPERCHOLESTEROLAEMIA
     Dates: start: 20060406

REACTIONS (4)
  - DISEASE PROGRESSION [None]
  - GASTROINTESTINAL STROMAL TUMOUR [None]
  - MALIGNANT NEOPLASM PROGRESSION [None]
  - SUDDEN DEATH [None]
